FAERS Safety Report 5030019-1 (Version None)
Quarter: 2006Q2

REPORT INFORMATION
  Report Type: 
  Country: None (occurrence: None)
  Receive Date: 20060620
  Receipt Date: 20060612
  Transmission Date: 20061013
  Serious: Yes (Death, Life-Threatening)
  Sender: FDA-Public Use
  Company Number: US-JNJFOC-20060500071

PATIENT
  Sex: Female
  Weight: 47.6 kg

DRUGS (13)
  1. NATRECOR [Suspect]
     Indication: PULMONARY OEDEMA
     Dosage: 28.2MCG/HR
  2. NATRECOR [Suspect]
     Indication: CARDIAC FAILURE CONGESTIVE
     Dosage: BOLUS DOSE
  3. LOPRESSOR [Concomitant]
  4. LASIX [Concomitant]
     Route: 042
  5. NITROGLYCERIN [Concomitant]
     Route: 061
  6. DIGOXIN [Concomitant]
     Route: 048
  7. DIGOXIN [Concomitant]
     Route: 048
  8. BUMETANIDE [Concomitant]
     Indication: DIURETIC THERAPY
     Route: 042
  9. DOPAMINE [Concomitant]
     Route: 042
  10. TYLENOL (CAPLET) [Concomitant]
  11. ZETIA [Concomitant]
     Route: 048
  12. WARFARIN SODIUM [Concomitant]
  13. MORPHINE [Concomitant]
     Route: 042

REACTIONS (5)
  - BLOOD CHLORIDE DECREASED [None]
  - DEATH [None]
  - DRUG INEFFECTIVE [None]
  - HYPOGLYCAEMIA [None]
  - UNRESPONSIVE TO VERBAL STIMULI [None]
